FAERS Safety Report 17961760 (Version 2)
Quarter: 2020Q3

REPORT INFORMATION
  Report Type: Spontaneous
  Country: US (occurrence: US)
  Receive Date: 20200630
  Receipt Date: 20200702
  Transmission Date: 20201103
  Serious: No
  Sender: FDA-Public Use
  Company Number: US-TEVA-2020-US-1796051

PATIENT
  Age: 40 Year
  Sex: Female

DRUGS (1)
  1. AJOVY [Suspect]
     Active Substance: FREMANEZUMAB-VFRM
     Dosage: SPECIFICALLY, THIRD MONTHLY DOSE ON 6/16/2020.

REACTIONS (3)
  - Injection site pruritus [Unknown]
  - Injection site erythema [Unknown]
  - Injection site mass [Unknown]
